FAERS Safety Report 22590071 (Version 2)
Quarter: 2023Q2

REPORT INFORMATION
  Report Type: Spontaneous
  Country: JP (occurrence: JP)
  Receive Date: 20230612
  Receipt Date: 20230621
  Transmission Date: 20230722
  Serious: Yes (Other)
  Sender: FDA-Public Use
  Company Number: JP-OTSUKA-2023_015233

PATIENT

DRUGS (1)
  1. SAMSCA [Suspect]
     Active Substance: TOLVAPTAN
     Indication: Inappropriate antidiuretic hormone secretion
     Dosage: A TOTAL OF 2 DOSES (0.1 MG/KG, 0.4 MG/KG)
     Route: 065

REACTIONS (3)
  - Blood sodium increased [Unknown]
  - Rapid correction of hyponatraemia [Unknown]
  - Product administered to patient of inappropriate age [Unknown]
